FAERS Safety Report 6463478-8 (Version None)
Quarter: 2009Q4

REPORT INFORMATION
  Report Type: 
  Country: None (occurrence: None)
  Receive Date: 20091201
  Receipt Date: 20091119
  Transmission Date: 20100525
  Serious: No
  Sender: FDA-Public Use
  Company Number: US-B.I. PHARMACEUTICALS,INC./RIDGEFIELD-2009-BP-05101BP

PATIENT
  Sex: Male

DRUGS (2)
  1. FLOMAX [Suspect]
     Dosage: 0.4 MG
     Route: 048
  2. FLOMAX [Suspect]
     Dosage: 0.8 MG
     Route: 048

REACTIONS (2)
  - DRUG INEFFECTIVE [None]
  - FATIGUE [None]
